FAERS Safety Report 8156500-4 (Version None)
Quarter: 2012Q1

REPORT INFORMATION
  Report Type: 
  Country: None (occurrence: None)
  Receive Date: 20120216
  Receipt Date: 20120209
  Transmission Date: 20120608
  Serious: Yes (Other)
  Sender: FDA-Public Use
  Company Number: 1201-006

PATIENT
  Age: 85 Year
  Sex: Male

DRUGS (2)
  1. GENTAMICIN SULFATE [Concomitant]
  2. EYLEA [Suspect]
     Indication: AGE-RELATED MACULAR DEGENERATION
     Dosage: 2 MG, ONCE, INTRAVITREAL
     Dates: start: 20111215, end: 20111215

REACTIONS (3)
  - EYE PAIN [None]
  - VISUAL IMPAIRMENT [None]
  - CORNEAL DECOMPENSATION [None]
